FAERS Safety Report 6217950-6 (Version None)
Quarter: 2009Q2

REPORT INFORMATION
  Report Type: 
  Country: None (occurrence: None)
  Receive Date: 20090608
  Receipt Date: 20090529
  Transmission Date: 20091009
  Serious: Yes (Death)
  Sender: FDA-Public Use
  Company Number: US-MYLANLABS-2009S1009488

PATIENT
  Age: 39 Year
  Sex: Female

DRUGS (3)
  1. FENTANYL TRANSDERMAL SYSTEM [Suspect]
     Route: 062
  2. XANAX [Concomitant]
     Indication: ANXIETY
     Route: 048
  3. CYCLOBENZAPRINE [Concomitant]

REACTIONS (3)
  - ACCIDENTAL OVERDOSE [None]
  - INTENTIONAL DRUG MISUSE [None]
  - THERAPY NAIVE [None]
